FAERS Safety Report 4470542-1 (Version None)
Quarter: 2004Q4

REPORT INFORMATION
  Report Type: 
  Country: None (occurrence: None)
  Receive Date: 20041001
  Receipt Date: 20040923
  Transmission Date: 20050328
  Serious: Yes (Other)
  Sender: FDA-Public Use
  Company Number: CIP04001352

PATIENT
  Age: 71 Year
  Sex: Female

DRUGS (1)
  1. ACTONEL [Suspect]
     Indication: OSTEOPOROSIS
     Dosage: 35 MG, ORAL
     Route: 048
     Dates: start: 20040501, end: 20040501

REACTIONS (2)
  - DIPLOPIA [None]
  - VISUAL DISTURBANCE [None]
